FAERS Safety Report 9183166 (Version 1)
Quarter: 2013Q1

REPORT INFORMATION
  Report Type: Spontaneous
  Country: US (occurrence: US)
  Receive Date: 20130322
  Receipt Date: 20130322
  Transmission Date: 20140127
  Serious: No
  Sender: FDA-Public Use
  Company Number: US-BRISTOL-MYERS SQUIBB COMPANY-16917643

PATIENT
  Age: 59 Year
  Sex: Male
  Weight: 83.44 kg

DRUGS (5)
  1. ERBITUX SOLN FOR INF [Suspect]
     Indication: TONGUE NEOPLASM MALIGNANT STAGE UNSPECIFIED
     Route: 042
     Dates: start: 201208
  2. ERBITUX SOLN FOR INF [Suspect]
     Indication: OESOPHAGEAL CARCINOMA
     Route: 042
     Dates: start: 201208
  3. ACETAMINOPHEN W/HYDROCODONE BITARTRATE [Concomitant]
     Indication: PAIN
     Dosage: 1DF:7.5/500 MG/15ML?Q4
  4. LORTAB [Concomitant]
     Indication: PAIN
     Dosage: 1 DF:15ML?7.5/500MG
  5. ONDANSETRON [Concomitant]
     Indication: NAUSEA

REACTIONS (2)
  - Dry mouth [Recovering/Resolving]
  - Headache [Recovered/Resolved]
